FAERS Safety Report 8420431-2 (Version None)
Quarter: 2012Q2

REPORT INFORMATION
  Report Type: 
  Country: None (occurrence: None)
  Receive Date: 20120607
  Receipt Date: 20120523
  Transmission Date: 20120825
  Serious: Yes (Other)
  Sender: FDA-Public Use
  Company Number: CHPA2012US010983

PATIENT
  Age: 57 Year
  Sex: Female

DRUGS (3)
  1. DICLOFENAC EPOLAMINUM [Concomitant]
     Indication: OSTEOARTHRITIS
     Dosage: UNK
     Dates: start: 20120501
  2. VOLTAREN [Suspect]
     Indication: OSTEOARTHRITIS
     Dosage: UNK, UNK
     Route: 061
     Dates: start: 20100101
  3. PENNSAID [Suspect]
     Dosage: UNK, UNK
     Dates: start: 20120202

REACTIONS (5)
  - HYPOAESTHESIA [None]
  - PARALYSIS [None]
  - DRUG ADMINISTERED AT INAPPROPRIATE SITE [None]
  - WRONG TECHNIQUE IN DRUG USAGE PROCESS [None]
  - OFF LABEL USE [None]
